FAERS Safety Report 7674523-6 (Version None)
Quarter: 2011Q3

REPORT INFORMATION
  Report Type: 
  Country: None (occurrence: None)
  Receive Date: 20110810
  Receipt Date: 20110728
  Transmission Date: 20111222
  Serious: Yes (Other)
  Sender: FDA-Public Use
  Company Number: PHHY2011BR68435

PATIENT
  Sex: Male
  Weight: 105 kg

DRUGS (8)
  1. METOPROLOL SUCCINATE [Concomitant]
     Indication: HYPERTENSION
     Dosage: 1 DF, UNK
     Route: 048
  2. APRESOLINE [Concomitant]
     Dosage: UNK UKN, UNK
  3. PRAMIPEXOLE DIHYCHLLORIDE [Concomitant]
     Indication: PARKINSON'S DISEASE
     Dosage: 1 DF, BID
     Route: 048
  4. EFINAL [Concomitant]
     Indication: BLOOD INSULIN
     Dosage: 1 DF, BID
     Route: 048
  5. DIOVAN [Suspect]
     Dosage: 1 DF, DAILY (320 MG)
     Route: 048
     Dates: start: 20110718
  6. EXFORGE [Suspect]
     Indication: HYPERTENSION
     Dosage: 1 DF DAILY
     Route: 048
     Dates: end: 20110701
  7. SELEGILINE [Concomitant]
     Indication: PARKINSON'S DISEASE
     Dosage: 1 DF, BID
     Route: 048
  8. DIOVAN [Suspect]
     Indication: HYPERTENSION
     Dosage: 1 DF, DAILY (320 MG)
     Route: 048

REACTIONS (2)
  - DIABETES MELLITUS [None]
  - TREMOR [None]
